FAERS Safety Report 10732407 (Version 5)
Quarter: 2017Q1

REPORT INFORMATION
  Report Type: Spontaneous
  Country: US (occurrence: US)
  Receive Date: 20150123
  Receipt Date: 20170302
  Transmission Date: 20170428
  Serious: No
  Sender: FDA-Public Use
  Company Number: US-PFIZER INC-2015018729

PATIENT
  Age: 63 Year
  Sex: Male
  Weight: 68.27 kg

DRUGS (3)
  1. SUTENT [Suspect]
     Active Substance: SUNITINIB MALATE
     Dosage: 50 MG, CYCLIC[2 WEEKS ON AND 1 WEEK OFF]
     Route: 048
  2. LEVOTHYROXINE. [Concomitant]
     Active Substance: LEVOTHYROXINE
     Indication: THYROID DISORDER
     Dosage: 0.75 UG, UNK [ONCE]
  3. SUTENT [Suspect]
     Active Substance: SUNITINIB MALATE
     Indication: RENAL CANCER METASTATIC
     Dosage: 50 MG, CYCLIC (28 DAYS ON 14 DAYS OFF)

REACTIONS (13)
  - Hypoacusis [Unknown]
  - Asthenia [Unknown]
  - Hot flush [Unknown]
  - Mouth injury [Unknown]
  - Dry mouth [Unknown]
  - Dyspepsia [Unknown]
  - Pyrexia [Unknown]
  - Nasal congestion [Unknown]
  - Cough [Unknown]
  - Odynophagia [Unknown]
  - Fatigue [Recovered/Resolved]
  - Stomatitis [Unknown]
  - Nasopharyngitis [Unknown]

NARRATIVE: CASE EVENT DATE: 201401
